FAERS Safety Report 4627767-1 (Version None)
Quarter: 2005Q2

REPORT INFORMATION
  Report Type: 
  Country: None (occurrence: None)
  Receive Date: 20050401
  Receipt Date: 20050322
  Transmission Date: 20051028
  Serious: Yes (Hospitalization)
  Sender: FDA-Public Use
  Company Number: 6509

PATIENT
  Age: 67 Year
  Sex: Male

DRUGS (6)
  1. ACYCLOVIR [Suspect]
     Indication: ENCEPHALITIS HERPES
     Dosage: SEE IMAGE
  2. ACYCLOVIR [Suspect]
     Indication: HERPES ZOSTER
     Dosage: SEE IMAGE
  3. PREDNISOLONE [Concomitant]
  4. GLIPIZIDE [Concomitant]
  5. MANNITOL [Concomitant]
  6. PHENYTOIN [Concomitant]

REACTIONS (8)
  - CEREBRAL ATROPHY [None]
  - DEPRESSED LEVEL OF CONSCIOUSNESS [None]
  - ENCEPHALITIS HERPES [None]
  - GRAND MAL CONVULSION [None]
  - HAEMODIALYSIS [None]
  - ISCHAEMIC STROKE [None]
  - NEUROTOXICITY [None]
  - RENAL FAILURE ACUTE [None]
